FAERS Safety Report 8535718-2 (Version None)
Quarter: 2012Q2

REPORT INFORMATION
  Report Type: 
  Country: None (occurrence: None)
  Receive Date: 20120412
  Receipt Date: 20110518
  Transmission Date: 20120825
  Serious: Yes (Other)
  Sender: FDA-Public Use
  Company Number: PHHY2011US42999

PATIENT
  Age: 58 Year
  Sex: Female

DRUGS (9)
  1. ESTALIS COMBIPATCH (ESTRADIOL, NORETHISTERONE ACETATE) TRANS-THERAPEUT [Suspect]
     Dosage: 2XWEEK,TRANSDERMAL
     Route: 062
  2. XANAX [Concomitant]
  3. AVALIDE [Concomitant]
  4. ATENOLOL [Concomitant]
  5. LIPITOR [Concomitant]
  6. CLARINEX (LORATADINE, PSEUDOEPHEDRINE SULFATE) [Concomitant]
  7. NEXIUM [Concomitant]
  8. AMBIEN [Concomitant]
  9. FLONASE [Concomitant]

REACTIONS (3)
  - BREAST TENDERNESS [None]
  - VAGINAL HAEMORRHAGE [None]
  - POLYP [None]
